FAERS Safety Report 11283169 (Version 1)
Quarter: 2015Q3

REPORT INFORMATION
  Report Type: Spontaneous
  Country: US (occurrence: None)
  Receive Date: 20150717
  Receipt Date: 20150717
  Transmission Date: 20151125
  Serious: Yes (Life-Threatening)
  Sender: FDA-Public Use
  Company Number: None

PATIENT
  Age: 73 Year
  Sex: Male
  Weight: 90.4 kg

DRUGS (2)
  1. FENTANYL. [Suspect]
     Active Substance: FENTANYL
     Dosage: 25 MCG PRN IV
     Route: 042
     Dates: start: 20130216, end: 20130216
  2. MIDAZOLAM [Suspect]
     Active Substance: MIDAZOLAM\MIDAZOLAM HYDROCHLORIDE
     Indication: COLONOSCOPY
     Route: 042
     Dates: start: 20130216, end: 20130216

REACTIONS (3)
  - Rash maculo-papular [None]
  - Pruritus [None]
  - Hypersensitivity [None]

NARRATIVE: CASE EVENT DATE: 20130216
